FAERS Safety Report 17086747 (Version 1)
Quarter: 2019Q4

REPORT INFORMATION
  Report Type: Spontaneous
  Country: US (occurrence: US)
  Receive Date: 20191031
  Receipt Date: 20191031
  Transmission Date: 20200122
  Serious: Yes (Other)
  Sender: FDA-Public Use
  Company Number: None

PATIENT
  Age: 39 Year
  Sex: Male

DRUGS (1)
  1. TRAMADOL. [Suspect]
     Active Substance: TRAMADOL
     Indication: PAIN
     Dosage: ?          OTHER FREQUENCY:PRN;?
     Route: 048
     Dates: start: 20190806, end: 20190816

REACTIONS (1)
  - Hallucination [None]

NARRATIVE: CASE EVENT DATE: 20190821
